FAERS Safety Report 9294444 (Version 1)
Quarter: 2013Q1

REPORT INFORMATION
  Report Type: Spontaneous
  Country: US (occurrence: US)
  Receive Date: 20121214
  Receipt Date: 20121214
  Transmission Date: 20140127
  Serious: Yes (Other)
  Sender: FDA-Public Use
  Company Number: 1111USA00517

PATIENT
  Age: 72 Year
  Sex: Female

DRUGS (2)
  1. JANUVIA [Suspect]
     Indication: DIABETES MELLITUS
     Route: 048
     Dates: start: 20111020, end: 20111103
  2. MK-9378 (METFORMIN) TABLET [Concomitant]

REACTIONS (4)
  - Pancreatitis [None]
  - Abdominal pain [None]
  - Feeling abnormal [None]
  - Nausea [None]
